FAERS Safety Report 8956048 (Version 1)
Quarter: 2012Q4

REPORT INFORMATION
  Report Type: 
  Country: US (occurrence: US)
  Receive Date: 20121210
  Receipt Date: 20121210
  Transmission Date: 20130627
  Serious: Yes (Other)
  Sender: FDA-Public Use
  Company Number: US-JNJFOC-20121114738

PATIENT
  Sex: Female
  Weight: 72.58 kg

DRUGS (3)
  1. NUCYNTA [Suspect]
     Indication: PAIN
     Dosage: once
     Route: 048
     Dates: start: 2012, end: 2012
  2. TRAMADOL [Suspect]
     Indication: PAIN
     Dosage: 50 mg every 6 hours
     Route: 048
     Dates: start: 2012
  3. TRAMADOL [Suspect]
     Indication: PAIN
     Dosage: 50 mg every 8 hours
     Route: 048
     Dates: start: 201211, end: 201211

REACTIONS (5)
  - Delirium [Unknown]
  - Constipation [Recovered/Resolved]
  - Weight decreased [Not Recovered/Not Resolved]
  - Insomnia [Unknown]
  - Treatment noncompliance [Unknown]
